FAERS Safety Report 19305752 (Version 1)
Quarter: 2021Q2

REPORT INFORMATION
  Report Type: Spontaneous
  Country: CA (occurrence: CA)
  Receive Date: 20210526
  Receipt Date: 20210526
  Transmission Date: 20210717
  Serious: Yes (Death)
  Sender: FDA-Public Use
  Company Number: CA-GRANULES-CA-2021GRALIT00301

PATIENT

DRUGS (2)
  1. INDOMETACIN [Suspect]
     Active Substance: INDOMETHACIN
     Route: 064
  2. IBUPROFEN. [Suspect]
     Active Substance: IBUPROFEN
     Route: 064

REACTIONS (1)
  - Foetal exposure during pregnancy [Fatal]
